FAERS Safety Report 25114243 (Version 1)
Quarter: 2025Q1

REPORT INFORMATION
  Report Type: Spontaneous
  Country: US (occurrence: US)
  Receive Date: 20250324
  Receipt Date: 20250324
  Transmission Date: 20250409
  Serious: No
  Sender: EISAI
  Company Number: US-Eisai-EC-2025-185868

PATIENT
  Age: 87 Year
  Sex: Female

DRUGS (2)
  1. LEQEMBI [Suspect]
     Active Substance: LECANEMAB-IRMB
     Indication: Dementia Alzheimer^s type
     Dates: start: 20250219
  2. DONEPEZIL HYDROCHLORIDE [Concomitant]
     Active Substance: DONEPEZIL HYDROCHLORIDE
     Indication: Product used for unknown indication

REACTIONS (3)
  - Dizziness [Unknown]
  - Heart rate increased [Unknown]
  - Dysstasia [Unknown]

NARRATIVE: CASE EVENT DATE: 20250308
